FAERS Safety Report 5802624-3 (Version None)
Quarter: 2008Q3

REPORT INFORMATION
  Report Type: 
  Country: None (occurrence: None)
  Receive Date: 20080702
  Receipt Date: 20080617
  Transmission Date: 20090109
  Serious: Yes (Other)
  Sender: FDA-Public Use
  Company Number: S08-FRA-00474-01

PATIENT
  Age: 71 Year
  Sex: Female

DRUGS (1)
  1. SEROPLEX (ESCITALOPRAM) [Suspect]
     Indication: DEPRESSION
     Dosage: 20 MG QD  PO
     Route: 048
     Dates: start: 20070930, end: 20071106

REACTIONS (1)
  - DYSKINESIA [None]
